FAERS Safety Report 8932631 (Version 1)
Quarter: 2013Q1

REPORT INFORMATION
  Report Type: Spontaneous
  Country: US (occurrence: None)
  Receive Date: 20121126
  Receipt Date: 20121126
  Transmission Date: 20140127
  Serious: Yes (Other)
  Sender: FDA-Public Use
  Company Number: None

PATIENT
  Age: 51 Year
  Sex: Female
  Weight: 77.11 kg

DRUGS (1)
  1. LIFETIME BLOCPAIN [Suspect]
     Dosage: APPLY TOPICALLY NO MORE THEN 4X DAILY

REACTIONS (14)
  - Burning sensation [None]
  - Pruritus [None]
  - Pruritus [None]
  - Nausea [None]
  - Chest pain [None]
  - Back pain [None]
  - Dizziness [None]
  - Ocular hyperaemia [None]
  - Throat tightness [None]
  - Paraesthesia oral [None]
  - Vomiting [None]
  - Lip swelling [None]
  - Anaphylactic reaction [None]
  - Abdominal pain [None]
